FAERS Safety Report 17956138 (Version 1)
Quarter: 2020Q2

REPORT INFORMATION
  Report Type: Spontaneous
  Country: US (occurrence: US)
  Receive Date: 20200629
  Receipt Date: 20200629
  Transmission Date: 20200714
  Serious: No
  Sender: FDA-Public Use
  Company Number: US-PFIZER INC-2020248100

PATIENT
  Age: 62 Year
  Sex: Male
  Weight: 122.47 kg

DRUGS (1)
  1. AMLODIPINE/ATORVASTATIN [Suspect]
     Active Substance: AMLODIPINE BESYLATE\ATORVASTATIN CALCIUM
     Indication: RESPIRATORY DISORDER
     Dosage: UNK, 1X/DAY
     Route: 048
     Dates: start: 2019

REACTIONS (5)
  - Overweight [Unknown]
  - Off label use [Unknown]
  - Dyspnoea [Unknown]
  - Product use in unapproved indication [Unknown]
  - Chronic obstructive pulmonary disease [Not Recovered/Not Resolved]

NARRATIVE: CASE EVENT DATE: 20200624
